FAERS Safety Report 5104078-1 (Version None)
Quarter: 2006Q3

REPORT INFORMATION
  Report Type: 
  Country: None (occurrence: None)
  Receive Date: 20060911
  Receipt Date: 20060829
  Transmission Date: 20061208
  Serious: Yes (Hospitalization)
  Sender: FDA-Public Use
  Company Number: 2006078162

PATIENT
  Age: 63 Year
  Sex: Male
  Weight: 70 kg

DRUGS (5)
  1. TAHOR (ATORVASTATIN) [Suspect]
     Indication: HYPERCHOLESTEROLAEMIA
     Dosage: 40 MG (EVERY DAY), ORAL
     Route: 048
  2. LISINOPRIL [Suspect]
     Indication: ESSENTIAL HYPERTENSION
     Dosage: 10 MG (DAILY), ORAL
     Route: 048
  3. REPAGLINIDE [Suspect]
     Indication: DIABETES MELLITUS
     Dosage: 4 MG (EVERY DAY), ORAL
     Route: 048
     Dates: end: 20060516
  4. REPAGLINIDE [Suspect]
     Indication: DIABETES MELLITUS
     Dosage: 4 MG (EVERY DAY), ORAL
     Route: 048
     Dates: end: 20060516
  5. METFORMIN HCL [Suspect]
     Indication: DIABETES MELLITUS
     Dosage: 1700 MG (850 MG,BID), ORAL
     Route: 048

REACTIONS (4)
  - EPISTAXIS [None]
  - GINGIVAL BLEEDING [None]
  - HAEMATURIA [None]
  - IDIOPATHIC THROMBOCYTOPENIC PURPURA [None]
